FAERS Safety Report 8847842 (Version 1)
Quarter: 2012Q4

REPORT INFORMATION
  Report Type: 
  Country: US (occurrence: US)
  Receive Date: 20121018
  Receipt Date: 20121018
  Transmission Date: 20130627
  Serious: Yes (Other)
  Sender: FDA-Public Use
  Company Number: US-JNJFOC-20121007093

PATIENT
  Age: 64 Year
  Sex: Female

DRUGS (1)
  1. REMICADE [Suspect]
     Indication: CROHN^S DISEASE
     Dosage: dose was reported as ^10 mg once in every 5 weeks^.
     Route: 042
     Dates: start: 2005

REACTIONS (2)
  - Adhesion [Unknown]
  - Rash pruritic [Unknown]
